FAERS Safety Report 6879924-1 (Version None)
Quarter: 2010Q3

REPORT INFORMATION
  Report Type: 
  Country: None (occurrence: None)
  Receive Date: 20100728
  Receipt Date: 20100722
  Transmission Date: 20110219
  Serious: Yes (Life-Threatening)
  Sender: FDA-Public Use
  Company Number: FR-CELGENEUS-056-C5013-10071932

PATIENT
  Sex: Female
  Weight: 52 kg

DRUGS (2)
  1. LENALIDOMIDE [Suspect]
     Route: 048
     Dates: start: 20060113
  2. LENALIDOMIDE [Suspect]
     Route: 048
     Dates: end: 20090712

REACTIONS (1)
  - ACUTE MYELOID LEUKAEMIA [None]
